FAERS Safety Report 6007950-3 (Version None)
Quarter: 2008Q4

REPORT INFORMATION
  Report Type: 
  Country: None (occurrence: None)
  Receive Date: 20081217
  Receipt Date: 20080617
  Transmission Date: 20090506
  Serious: No
  Sender: FDA-Public Use
  Company Number: US-ASTRAZENECA-2008UW12212

PATIENT
  Age: 62 Year
  Sex: Male
  Weight: 77.1 kg

DRUGS (3)
  1. CRESTOR [Suspect]
     Indication: BLOOD CHOLESTEROL INCREASED
     Route: 048
     Dates: start: 20080607
  2. ZYRTEC [Concomitant]
  3. THYROID MEDICATION [Concomitant]

REACTIONS (3)
  - BURNING SENSATION [None]
  - CHAPPED LIPS [None]
  - LIP SWELLING [None]
